FAERS Safety Report 8092664-9 (Version None)
Quarter: 2012Q1

REPORT INFORMATION
  Report Type: 
  Country: None (occurrence: None)
  Receive Date: 20120131
  Receipt Date: 20120123
  Transmission Date: 20120608
  Serious: No
  Sender: FDA-Public Use
  Company Number: US-B.I. PHARMACEUTICALS,INC./RIDGEFIELD-2011-BP-03213BP

PATIENT
  Age: 67 Year
  Sex: Female

DRUGS (14)
  1. PRADAXA [Suspect]
     Indication: PULMONARY EMBOLISM
     Dosage: 300 MG
     Route: 048
     Dates: start: 20110101
  2. PEPCID [Concomitant]
     Indication: ABDOMINAL DISCOMFORT
  3. SYNTHROID [Concomitant]
     Indication: HYPOTHYROIDISM
     Route: 048
     Dates: start: 20101001
  4. COUMADIN [Concomitant]
     Indication: ATRIAL FIBRILLATION
  5. PREVACID [Concomitant]
     Indication: HELICOBACTER INFECTION
     Dosage: 60 MG
     Route: 048
     Dates: start: 20101001
  6. PRADAXA [Suspect]
  7. PRADAXA [Suspect]
     Indication: ATRIAL FIBRILLATION
  8. CLARITIN [Concomitant]
     Indication: HYPERSENSITIVITY
     Route: 048
  9. PEPCID [Concomitant]
     Indication: GASTROOESOPHAGEAL REFLUX DISEASE
     Route: 048
     Dates: start: 20101001
  10. PRADAXA [Suspect]
     Indication: CEREBROVASCULAR ACCIDENT PROPHYLAXIS
     Dosage: 150 MG
     Route: 048
     Dates: start: 20110215
  11. SYNTHROID [Concomitant]
  12. LYRICA [Concomitant]
     Indication: HEADACHE
     Dosage: 100 MG
     Route: 048
     Dates: start: 20110125
  13. LYRICA [Concomitant]
  14. COUMADIN [Concomitant]
     Indication: PULMONARY EMBOLISM
     Route: 048
     Dates: start: 20101001, end: 20110124

REACTIONS (6)
  - HYPOAESTHESIA [None]
  - OEDEMA PERIPHERAL [None]
  - ABDOMINAL DISCOMFORT [None]
  - HEADACHE [None]
  - SENSITIVITY OF TEETH [None]
  - TOOTH DISORDER [None]
